FAERS Safety Report 17563007 (Version 1)
Quarter: 2020Q1

REPORT INFORMATION
  Report Type: Spontaneous
  Country: US (occurrence: US)
  Receive Date: 20200319
  Receipt Date: 20200319
  Transmission Date: 20200409
  Serious: Yes (Other)
  Sender: FDA-Public Use
  Company Number: US-REGENERON PHARMACEUTICALS, INC.-2020-24686

PATIENT

DRUGS (2)
  1. EYLEA [Suspect]
     Active Substance: AFLIBERCEPT
     Indication: MACULAR OEDEMA
     Dosage: LEFT EYE, INITIALLY ONCE EVERY MONTH AND EXTENDED TO EVERY 2 TO 3 MONTHS
     Route: 031
     Dates: start: 20190426, end: 20190426
  2. EYLEA [Suspect]
     Active Substance: AFLIBERCEPT
     Indication: RETINAL VEIN OCCLUSION
     Dosage: LEFT EYE, INITIALLY ONCE EVERY MONTH AND EXTENDED TO EVERY 2 TO 3 MONTHS
     Route: 031
     Dates: start: 20171109

REACTIONS (2)
  - Product dose omission [Unknown]
  - Glaucoma [Unknown]

NARRATIVE: CASE EVENT DATE: 201904
